FAERS Safety Report 4356546-8 (Version None)
Quarter: 2004Q2

REPORT INFORMATION
  Report Type: 
  Country: None (occurrence: None)
  Receive Date: 20040506
  Receipt Date: 20040426
  Transmission Date: 20050107
  Serious: Yes (Hospitalization)
  Sender: FDA-Public Use
  Company Number: 04P-056-0258932-00

PATIENT
  Age: 73 Year
  Sex: Female

DRUGS (12)
  1. ERYTHROMYCIN [Suspect]
     Indication: LUNG DISORDER
     Dosage: 1 GM, 4 IN 1 D, PER ORAL
     Route: 048
     Dates: start: 20040101, end: 20040204
  2. WARFARIN SODIUM [Suspect]
     Dosage: 5 MG, 1 IN 1 D, PER ORAL
     Route: 048
  3. PAROXETINE HCL [Suspect]
     Dosage: 20 MG, 1 IN 1 D, PER ORAL
     Route: 048
     Dates: start: 20040101
  4. ENALAPRIL MALEATE [Concomitant]
  5. BISELECT [Concomitant]
  6. FUROSEMIDE [Concomitant]
  7. LEVOTHYROXINE [Concomitant]
  8. DIGOXIN [Concomitant]
  9. GLYCERYL TRINITRATE [Concomitant]
  10. ALLOPURINOL TAB [Concomitant]
  11. CEFTRIAXONE [Concomitant]
  12. ACETYLLEUCINE [Concomitant]

REACTIONS (6)
  - ABDOMINAL PAIN [None]
  - DRUG INTERACTION [None]
  - MUSCLE HAEMORRHAGE [None]
  - OVERDOSE [None]
  - PROTHROMBIN LEVEL DECREASED [None]
  - VITAMIN K INCREASED [None]
